FAERS Safety Report 7783094-5 (Version None)
Quarter: 2011Q3

REPORT INFORMATION
  Report Type: 
  Country: None (occurrence: None)
  Receive Date: 20110928
  Receipt Date: 20110922
  Transmission Date: 20111222
  Serious: No
  Sender: FDA-Public Use
  Company Number: US-PFIZER INC-2011226647

PATIENT
  Sex: Female
  Weight: 44.9 kg

DRUGS (2)
  1. PREMPRO [Suspect]
     Dosage: 0.45/1.5 MG,DAILY
     Route: 048
     Dates: start: 20110918
  2. PREMPRO [Suspect]
     Indication: HOT FLUSH
     Dosage: 0.45/1.5 MG, DAILY
     Route: 048
     Dates: start: 20070927

REACTIONS (1)
  - DRUG INEFFECTIVE [None]
